FAERS Safety Report 8891187 (Version 1)
Quarter: 2012Q4

REPORT INFORMATION
  Report Type: 
  Country: US (occurrence: US)
  Receive Date: 20121107
  Receipt Date: 20121107
  Transmission Date: 20130627
  Serious: No
  Sender: FDA-Public Use
  Company Number: US-PFIZER INC-2012277680

PATIENT
  Sex: Female

DRUGS (3)
  1. LYRICA [Suspect]
     Indication: PAIN IN CERVICAL SPINE
     Dosage: 50 mg, 2x/day
     Dates: start: 201210
  2. CELEBREX [Concomitant]
     Dosage: 200 mg, UNK
  3. TRAMADOL [Concomitant]
     Dosage: UNK, 1x/day

REACTIONS (1)
  - Pain [Unknown]
